FAERS Safety Report 14301167 (Version 1)
Quarter: 2017Q4

REPORT INFORMATION
  Report Type: Spontaneous
  Country: US (occurrence: US)
  Receive Date: 20171218
  Receipt Date: 20171218
  Transmission Date: 20180321
  Serious: Yes (Other)
  Sender: FDA-Public Use
  Company Number: None

PATIENT
  Age: 47 Year
  Sex: Female
  Weight: 51.75 kg

DRUGS (1)
  1. ATIVAN [Suspect]
     Active Substance: LORAZEPAM
     Indication: ANXIETY

REACTIONS (2)
  - Emotional disorder [None]
  - Hallucination [None]
